FAERS Safety Report 9350575 (Version 1)
Quarter: 2013Q2

REPORT INFORMATION
  Report Type: Spontaneous
  Country: US (occurrence: None)
  Receive Date: 20130613
  Receipt Date: 20130613
  Transmission Date: 20140414
  Serious: Yes (Hospitalization)
  Sender: FDA-Public Use
  Company Number: None

PATIENT
  Age: 60 Year
  Sex: Male
  Weight: 73 kg

DRUGS (9)
  1. ACTHAR GEL-SYNTHETIC [Suspect]
     Indication: MIGRAINE
     Dosage: 40 U QD SUBCUTANEOUS
     Route: 058
     Dates: start: 20130606, end: 20130607
  2. CLONAZEPAM [Concomitant]
  3. VALIUM [Concomitant]
  4. CYMBALTA [Concomitant]
  5. ZOFRAN [Concomitant]
  6. TORADOL [Concomitant]
  7. DHE [Concomitant]
  8. PHENERGAN [Concomitant]
  9. BENEDRYL [Concomitant]

REACTIONS (4)
  - Migraine [None]
  - Psychogenic seizure [None]
  - Muscular weakness [None]
  - Dyskinesia [None]
